FAERS Safety Report 5811432-9 (Version None)
Quarter: 2008Q3

REPORT INFORMATION
  Report Type: 
  Country: None (occurrence: None)
  Receive Date: 20080716
  Receipt Date: 20080710
  Transmission Date: 20090109
  Serious: Yes (Other)
  Sender: FDA-Public Use
  Company Number: US-JNJFOC-20080404670

PATIENT
  Sex: Female
  Weight: 81.65 kg

DRUGS (6)
  1. INVEGA [Suspect]
     Indication: BIPOLAR DISORDER
     Route: 048
  2. EFFEXOR XR [Suspect]
     Indication: POST-TRAUMATIC STRESS DISORDER
     Route: 048
  3. EFFEXOR XR [Suspect]
     Indication: BIPOLAR DISORDER
     Route: 048
  4. LAMICTAL [Concomitant]
     Indication: BIPOLAR DISORDER
     Route: 048
  5. WELLBUTRIN [Concomitant]
     Indication: BIPOLAR DISORDER
     Route: 048
  6. NEURONTIN [Concomitant]
     Indication: INSOMNIA
     Route: 048

REACTIONS (10)
  - CHILLS [None]
  - DEAFNESS [None]
  - DISORIENTATION [None]
  - DIZZINESS [None]
  - FLUSHING [None]
  - HYPERREFLEXIA [None]
  - HYPONATRAEMIA [None]
  - MUSCLE SPASMS [None]
  - MUSCULAR WEAKNESS [None]
  - TARDIVE DYSKINESIA [None]
